FAERS Safety Report 9921457 (Version 2)
Quarter: 2014Q1

REPORT INFORMATION
  Report Type: Report from Study
  Country: ZA (occurrence: ZA)
  Receive Date: 20140225
  Receipt Date: 20140225
  Transmission Date: 20141002
  Serious: Yes (Other)
  Sender: FDA-Public Use
  Company Number: ZA-PFIZER INC-HQWYE526921JUN04

PATIENT
  Age: 31 Year
  Sex: Male
  Weight: 92 kg

DRUGS (1)
  1. DESVENLAFAXINE SUCCINATE MONOHYDRATE [Suspect]
     Indication: MAJOR DEPRESSION
     Dosage: 200 MG, 1X/DAY
     Route: 048
     Dates: start: 20040610, end: 20040613

REACTIONS (1)
  - Sedation [Recovered/Resolved]
